FAERS Safety Report 23124318 (Version 1)
Quarter: 2023Q4

REPORT INFORMATION
  Report Type: Spontaneous
  Country: CH (occurrence: CH)
  Receive Date: 20231030
  Receipt Date: 20231030
  Transmission Date: 20240110
  Serious: Yes (Hospitalization, Other)
  Sender: FDA-Public Use
  Company Number: CH-EPICPHARMA-CH-2023EPCLIT01517

PATIENT
  Age: 71 Year
  Sex: Female

DRUGS (6)
  1. TIMOLOL MALEATE [Suspect]
     Active Substance: TIMOLOL MALEATE
     Indication: Ocular hypertension
     Dosage: 1 DROP IN THE MORNING
     Route: 047
  2. CANDESARTAN [Concomitant]
     Active Substance: CANDESARTAN
     Indication: Hypertension
     Route: 065
  3. ATORVASTATIN [Concomitant]
     Active Substance: ATORVASTATIN
     Indication: Hyperlipidaemia
     Route: 065
  4. ASPIRIN [Concomitant]
     Active Substance: ASPIRIN
     Route: 065
  5. PANTOPRAZOLE [Concomitant]
     Active Substance: PANTOPRAZOLE
     Route: 065
  6. IBUPROFEN [Concomitant]
     Active Substance: IBUPROFEN
     Route: 065

REACTIONS (5)
  - Syncope [Unknown]
  - Bradycardia [Recovered/Resolved]
  - Dizziness [Unknown]
  - Hypotension [Recovered/Resolved]
  - Drug-genetic interaction [Unknown]
